FAERS Safety Report 6627949-3 (Version None)
Quarter: 2010Q1

REPORT INFORMATION
  Report Type: 
  Country: None (occurrence: None)
  Receive Date: 20100308
  Receipt Date: 20100304
  Transmission Date: 20100710
  Serious: Yes (Hospitalization)
  Sender: FDA-Public Use
  Company Number: 1000012150

PATIENT
  Age: 30 Month

DRUGS (1)
  1. LEVOTHROID [Suspect]
     Dosage: (18 MG, ONCE)

REACTIONS (3)
  - CONVULSION [None]
  - DRUG TOXICITY [None]
  - OVERDOSE [None]
